FAERS Safety Report 4622953-9 (Version None)
Quarter: 2005Q1

REPORT INFORMATION
  Report Type: 
  Country: None (occurrence: None)
  Receive Date: 20050329
  Receipt Date: 20031125
  Transmission Date: 20050727
  Serious: Yes (Death)
  Sender: FDA-Public Use
  Company Number: 10013

PATIENT
  Age: 72 Year
  Sex: Male

DRUGS (1)
  1. METHOTREXATE [Suspect]
     Dosage: 8 MG WEEKLY
     Dates: end: 20030601

REACTIONS (5)
  - ANOREXIA [None]
  - FUNGAL INFECTION [None]
  - PANCYTOPENIA [None]
  - STAPHYLOCOCCAL INFECTION [None]
  - STOMATITIS [None]
